FAERS Safety Report 4982796-3 (Version None)
Quarter: 2006Q2

REPORT INFORMATION
  Report Type: 
  Country: None (occurrence: None)
  Receive Date: 20060425
  Receipt Date: 20051228
  Transmission Date: 20061013
  Serious: Yes (Hospitalization)
  Sender: FDA-Public Use
  Company Number: US-MERCK-0512USA03992

PATIENT
  Age: 58 Year
  Sex: Male
  Weight: 101 kg

DRUGS (13)
  1. VIOXX [Suspect]
     Indication: ARTHRALGIA
     Route: 048
     Dates: start: 20020501, end: 20040901
  2. ASPIRIN [Concomitant]
     Route: 048
  3. [THERAPY UNSPECIFIED] [Concomitant]
     Route: 065
  4. ALLOPURINOL [Concomitant]
     Route: 048
  5. DILANTIN [Concomitant]
     Route: 048
  6. PHENYTEK [Concomitant]
     Route: 048
  7. IMIPRAMINE HYDROCHLORIDE [Concomitant]
     Route: 048
  8. ATENOLOL [Concomitant]
     Route: 048
  9. CLONAZEPAM [Concomitant]
     Route: 048
  10. AMIODARONE [Concomitant]
     Route: 048
  11. NIACIN [Concomitant]
     Route: 048
  12. PROZAC [Concomitant]
     Route: 048
  13. LIPITOR [Concomitant]
     Route: 048

REACTIONS (7)
  - BLOOD PRESSURE DECREASED [None]
  - CONVULSION [None]
  - CORONARY ARTERY DISEASE [None]
  - FALL [None]
  - RENAL FAILURE ACUTE [None]
  - ROAD TRAFFIC ACCIDENT [None]
  - WEIGHT DECREASED [None]
